FAERS Safety Report 13291572 (Version 5)
Quarter: 2017Q2

REPORT INFORMATION
  Report Type: Spontaneous
  Country: IT (occurrence: IT)
  Receive Date: 20170303
  Receipt Date: 20170516
  Transmission Date: 20170830
  Serious: Yes (Hospitalization, Other)
  Sender: FDA-Public Use
  Company Number: IT-009507513-1702ITA010453

PATIENT
  Age: 64 Year
  Sex: Female
  Weight: 46 kg

DRUGS (7)
  1. ESMERON [Suspect]
     Active Substance: ROCURONIUM BROMIDE
     Dosage: 10 UNK, UNK
     Route: 042
     Dates: start: 20170221, end: 20170221
  2. ATENOLOL (+) INDAPAMIDE [Concomitant]
     Dosage: UNK
  3. BRIDION [Suspect]
     Active Substance: SUGAMMADEX
     Indication: NEUROMUSCULAR BLOCKADE REVERSAL
     Dosage: 200 UNK, UNK, FORMULATION 100MG/ML
     Route: 042
     Dates: start: 20170221, end: 20170221
  4. BRIDION [Suspect]
     Active Substance: SUGAMMADEX
     Indication: GENERAL ANAESTHESIA
     Dosage: 200 MG, UNK, FORMULATION 100MG/ML
     Route: 042
     Dates: start: 20170221, end: 20170221
  5. ESMERON [Suspect]
     Active Substance: ROCURONIUM BROMIDE
     Indication: MUSCLE RELAXANT THERAPY
     Dosage: 50 UNK, UNK
     Route: 042
     Dates: start: 20170221, end: 20170221
  6. ESMERON [Suspect]
     Active Substance: ROCURONIUM BROMIDE
     Indication: GENERAL ANAESTHESIA
     Dosage: 10 UNK, UNK
     Route: 042
     Dates: start: 20170221, end: 20170221
  7. FULCROSUPRA [Concomitant]
     Active Substance: FENOFIBRATE
     Dosage: UNK

REACTIONS (3)
  - Muscular weakness [Recovered/Resolved]
  - Dyspnoea [Recovered/Resolved]
  - Anaesthetic complication pulmonary [Recovered/Resolved]

NARRATIVE: CASE EVENT DATE: 20170221
